FAERS Safety Report 25608014 (Version 2)
Quarter: 2025Q3

REPORT INFORMATION
  Report Type: Spontaneous
  Country: US (occurrence: US)
  Receive Date: 20250725
  Receipt Date: 20250829
  Transmission Date: 20251021
  Serious: No
  Sender: MALLINCKRODT
  Company Number: US-MALLINCKRODT-MNK202504074

PATIENT
  Age: 43 Year
  Sex: Female
  Weight: 84 kg

DRUGS (28)
  1. CORTICOTROPIN [Suspect]
     Active Substance: CORTICOTROPIN
     Indication: Ankylosing spondylitis
     Route: 058
     Dates: start: 20230323
  2. CORTICOTROPIN [Suspect]
     Active Substance: CORTICOTROPIN
     Indication: Rheumatoid arthritis
     Route: 058
     Dates: start: 20250211
  3. TALTZ [Concomitant]
     Active Substance: IXEKIZUMAB
     Dates: start: 20250211
  4. SYMBICORT [Concomitant]
     Active Substance: BUDESONIDE\FORMOTEROL FUMARATE DIHYDRATE
  5. METOPROLOL SUCCINATE [Concomitant]
     Active Substance: METOPROLOL SUCCINATE
  6. OXCARBAZEPINE [Concomitant]
     Active Substance: OXCARBAZEPINE
  7. ZOLMITRIPTAN [Concomitant]
     Active Substance: ZOLMITRIPTAN
  8. BUSPIRONE [Concomitant]
     Active Substance: BUSPIRONE HYDROCHLORIDE
  9. ZOLPIDEM [Concomitant]
     Active Substance: ZOLPIDEM TARTRATE
  10. MOVANTIK [Concomitant]
     Active Substance: NALOXEGOL OXALATE
  11. FAMOTIDINE [Concomitant]
     Active Substance: FAMOTIDINE
  12. DULOXETINE [Concomitant]
     Active Substance: DULOXETINE
  13. TIZANIDINE [Concomitant]
     Active Substance: TIZANIDINE
  14. CHOLECALCIFEROL [Concomitant]
     Active Substance: CHOLECALCIFEROL
  15. ROPINIROLE [Concomitant]
     Active Substance: ROPINIROLE
  16. FOLIC ACID [Concomitant]
     Active Substance: FOLIC ACID
  17. VENTOLIN HFA [Concomitant]
     Active Substance: ALBUTEROL SULFATE
  18. ONDANSETRON [Concomitant]
     Active Substance: ONDANSETRON
  19. BOTOX [Concomitant]
     Active Substance: ONABOTULINUMTOXINA
  20. AJOVY [Concomitant]
     Active Substance: FREMANEZUMAB-VFRM
  21. VITAMIN B12 [Concomitant]
     Active Substance: CYANOCOBALAMIN
  22. CALCIUM CARBONATE\MAGNESIUM CARBONATE\MAGNESIUM TRISILICATE [Concomitant]
     Active Substance: CALCIUM CARBONATE\MAGNESIUM CARBONATE\MAGNESIUM TRISILICATE
  23. CLARITHROMYCIN [Concomitant]
     Active Substance: CLARITHROMYCIN
  24. DIPHENHYDRAMINE [Concomitant]
     Active Substance: DIPHENHYDRAMINE
  25. FERROUS SULFATE [Concomitant]
     Active Substance: FERROUS SULFATE
  26. MAGNESIUM [Concomitant]
     Active Substance: MAGNESIUM
  27. REFRESH TEARS [Concomitant]
     Active Substance: CARBOXYMETHYLCELLULOSE SODIUM
  28. SENNA LEAF [Concomitant]
     Active Substance: SENNA LEAF

REACTIONS (7)
  - Gastrooesophageal reflux disease [Recovering/Resolving]
  - Hernia [Unknown]
  - Migraine [Not Recovered/Not Resolved]
  - Abdominal pain upper [Recovered/Resolved]
  - Injection site mass [Recovered/Resolved]
  - Injection site pruritus [Recovered/Resolved]
  - Headache [Not Recovered/Not Resolved]

NARRATIVE: CASE EVENT DATE: 20250201
